FAERS Safety Report 14435861 (Version 2)
Quarter: 2018Q1

REPORT INFORMATION
  Report Type: Spontaneous
  Country: CN (occurrence: CN)
  Receive Date: 20180125
  Receipt Date: 20180214
  Transmission Date: 20180509
  Serious: Yes (Other)
  Sender: FDA-Public Use
  Company Number: CN-ACCORD-062903

PATIENT
  Age: 3 Year
  Sex: Male

DRUGS (7)
  1. TOPOTECAN [Suspect]
     Active Substance: TOPOTECAN HYDROCHLORIDE
     Indication: METASTASES TO PLEURA
  2. VINDESINE/VINDESINE SULFATE [Suspect]
     Active Substance: VINDESINE
     Indication: METASTASES TO LUNG
  3. GEMCITABINE [Suspect]
     Active Substance: GEMCITABINE\GEMCITABINE HYDROCHLORIDE
     Indication: NEUROBLASTOMA
  4. CARBOPLATIN. [Suspect]
     Active Substance: CARBOPLATIN
     Indication: NEUROBLASTOMA
  5. PIRARUBICIN [Suspect]
     Active Substance: PIRARUBICIN
     Indication: METASTASES TO PLEURA
  6. IFOSFAMIDE. [Suspect]
     Active Substance: IFOSFAMIDE
     Indication: METASTASES TO LUNG
  7. ETOPOSIDE HENGRUI PHARMACEUTICALS CO LTD [Suspect]
     Active Substance: ETOPOSIDE
     Indication: METASTASES TO PLEURA

REACTIONS (3)
  - Drug resistance [Unknown]
  - Bone marrow failure [Unknown]
  - Respiratory tract inflammation [Unknown]
